FAERS Safety Report 6367871-3 (Version None)
Quarter: 2009Q3

REPORT INFORMATION
  Report Type: 
  Country: None (occurrence: None)
  Receive Date: 20090922
  Receipt Date: 20090911
  Transmission Date: 20100115
  Serious: Yes (Other)
  Sender: FDA-Public Use
  Company Number: NZ-JNJCH-2009024931

PATIENT
  Age: 27 Month
  Sex: Female

DRUGS (1)
  1. PAMOL STRAWBERRY COLOUR FREE [Suspect]
     Indication: ACCIDENTAL EXPOSURE
     Dosage: TEXT:APPROXIMATELY 3/4 OF A 200ML BOTTLE
     Route: 048
     Dates: start: 20090911, end: 20090911

REACTIONS (1)
  - OVERDOSE [None]
